FAERS Safety Report 24182083 (Version 3)
Quarter: 2024Q3

REPORT INFORMATION
  Report Type: Spontaneous
  Country: US (occurrence: US)
  Receive Date: 20240807
  Receipt Date: 20240819
  Transmission Date: 20241017
  Serious: No
  Sender: ROCHE
  Company Number: US-ROCHE-10000049177

PATIENT
  Age: 74 Year
  Sex: Male
  Weight: 84.36 kg

DRUGS (1)
  1. ESBRIET [Suspect]
     Active Substance: PIRFENIDONE
     Indication: Idiopathic pulmonary fibrosis
     Dosage: 3 PILLS EACH TIME 3 TIMES A DAY
     Route: 048
     Dates: start: 2019

REACTIONS (2)
  - Product physical issue [Unknown]
  - Fatigue [Unknown]

NARRATIVE: CASE EVENT DATE: 20240731
